FAERS Safety Report 6414881-3 (Version None)
Quarter: 2009Q4

REPORT INFORMATION
  Report Type: 
  Country: None (occurrence: None)
  Receive Date: 20091026
  Receipt Date: 20091026
  Transmission Date: 20100525
  Serious: Yes (Other)
  Sender: FDA-Public Use
  Company Number: None

PATIENT
  Age: 91 Year
  Sex: Female

DRUGS (1)
  1. DILT-CD 120 MG ? APOTEX USA INC [Suspect]
     Dosage: 120 MG 1 TABLET DAILY
     Dates: start: 20090606, end: 20090827

REACTIONS (24)
  - ABNORMAL DREAMS [None]
  - AGITATION [None]
  - ANXIETY [None]
  - APHASIA [None]
  - CERUMEN IMPACTION [None]
  - CONFUSIONAL STATE [None]
  - DECREASED APPETITE [None]
  - DELIRIUM [None]
  - DELUSION [None]
  - DEMENTIA [None]
  - DEMENTIA ALZHEIMER'S TYPE [None]
  - DISORIENTATION [None]
  - DYSPNOEA [None]
  - EAR PAIN [None]
  - FEAR [None]
  - HYPERHIDROSIS [None]
  - MENTAL IMPAIRMENT [None]
  - PARANOIA [None]
  - PERSONALITY CHANGE [None]
  - PRODUCT SUBSTITUTION ISSUE [None]
  - SOCIAL AVOIDANT BEHAVIOUR [None]
  - TEMPERATURE INTOLERANCE [None]
  - THINKING ABNORMAL [None]
  - URINARY TRACT INFECTION [None]
